FAERS Safety Report 8202559-5 (Version None)
Quarter: 2012Q1

REPORT INFORMATION
  Report Type: 
  Country: None (occurrence: None)
  Receive Date: 20120312
  Receipt Date: 20120306
  Transmission Date: 20120608
  Serious: Yes (Death, Life-Threatening)
  Sender: FDA-Public Use
  Company Number: GXKR2012DE001073

PATIENT

DRUGS (4)
  1. MIRTAZAPINE [Suspect]
     Dosage: 30 MG/DAY
     Route: 048
     Dates: start: 20111031
  2. MIRTAZAPINE [Suspect]
     Dosage: 45 MG/DAY
     Route: 048
     Dates: start: 20111101, end: 20111105
  3. MIRTAZAPINE [Suspect]
     Dosage: 15 MG/DAY
     Route: 048
     Dates: start: 20111029, end: 20111030
  4. PROMETHAZINE [Suspect]
     Dosage: 50 MG/DAY
     Route: 048
     Dates: start: 20111024, end: 20111105

REACTIONS (1)
  - COMPLETED SUICIDE [None]
